FAERS Safety Report 19164429 (Version 1)
Quarter: 2021Q2

REPORT INFORMATION
  Report Type: Spontaneous
  Country: US (occurrence: US)
  Receive Date: 20210421
  Receipt Date: 20210421
  Transmission Date: 20210717
  Serious: No
  Sender: FDA-Public Use
  Company Number: US-INSUD PHARMA-2103US00370

PATIENT

DRUGS (2)
  1. TIROSINT [Concomitant]
     Active Substance: LEVOTHYROXINE SODIUM
     Indication: AUTOIMMUNE THYROIDITIS
     Dosage: 25 MG DAILY
     Route: 048
     Dates: start: 2018
  2. SLYND [Suspect]
     Active Substance: DROSPIRENONE
     Indication: ENDOMETRIOSIS
     Dosage: 4 MG DAILY
     Route: 048
     Dates: start: 202102

REACTIONS (4)
  - Intentional product use issue [Unknown]
  - Abdominal distension [Not Recovered/Not Resolved]
  - Nausea [Not Recovered/Not Resolved]
  - Headache [Not Recovered/Not Resolved]

NARRATIVE: CASE EVENT DATE: 202102
